FAERS Safety Report 4567138-X (Version None)
Quarter: 2005Q1

REPORT INFORMATION
  Report Type: 
  Country: None (occurrence: None)
  Receive Date: 20050201
  Receipt Date: 20041210
  Transmission Date: 20050727
  Serious: Yes (Life-Threatening, Hospitalization, Other)
  Sender: FDA-Public Use
  Company Number: GB-SANOFI-SYNTHELABO-F01200403898

PATIENT
  Sex: Male

DRUGS (5)
  1. RAMIPRIL [Concomitant]
  2. BENDROFLUAZIDE [Concomitant]
  3. CAPECITABINE [Suspect]
     Dosage: 2000 MG TWICE DAILY FOR 2 WEEKS, Q3W
     Route: 048
  4. OXALIPLATIN [Suspect]
     Indication: COLORECTAL CANCER METASTATIC
     Route: 042
  5. BEVACIZUMAB OR PLACEBO [Suspect]
     Route: 042

REACTIONS (2)
  - ABSCESS INTESTINAL [None]
  - INTESTINAL PERFORATION [None]
